FAERS Safety Report 10032869 (Version 2)
Quarter: 2014Q1

REPORT INFORMATION
  Report Type: Report from Study
  Country: US (occurrence: US)
  Receive Date: 20140324
  Receipt Date: 20140324
  Transmission Date: 20141002
  Serious: Yes (Hospitalization)
  Sender: FDA-Public Use
  Company Number: US-BRISTOL-MYERS SQUIBB COMPANY-19851765

PATIENT
  Age: 52 Year
  Sex: Female
  Weight: 47.62 kg

DRUGS (1)
  1. ABATACEPT SUBQ INJECTION 125MG/ML [Suspect]
     Indication: RHEUMATOID ARTHRITIS
     Dosage: EVERY FRIDAY,7TH WEEK OF ORENCIA THERAPY,LAST INJ:15NOV13?EXP:JUN2015
     Route: 058
     Dates: start: 2013

REACTIONS (10)
  - Polychondritis [Recovering/Resolving]
  - Tooth abscess [Recovered/Resolved]
  - Tooth infection [Unknown]
  - Sinusitis [Recovered/Resolved]
  - Tooth extraction [Unknown]
  - Alopecia [Unknown]
  - Fatigue [Unknown]
  - Decreased appetite [Unknown]
  - Weight increased [Unknown]
  - Drug ineffective [Unknown]
